FAERS Safety Report 7060730-2 (Version None)
Quarter: 2010Q4

REPORT INFORMATION
  Report Type: 
  Country: None (occurrence: None)
  Receive Date: 20101025
  Receipt Date: 20101013
  Transmission Date: 20110411
  Serious: Yes (Other)
  Sender: FDA-Public Use
  Company Number: AU-BAYER-201042414GPV

PATIENT
  Age: 44 Year
  Sex: Male
  Weight: 115 kg

DRUGS (1)
  1. ULTRAVIST 370 [Suspect]
     Indication: PRODUCT USED FOR UNKNOWN INDICATION
     Dosage: 2.5 ML/S
     Route: 065
     Dates: start: 20101013, end: 20101013

REACTIONS (3)
  - DRY THROAT [None]
  - SWELLING FACE [None]
  - URTICARIA [None]
